FAERS Safety Report 12575670 (Version 1)
Quarter: 2016Q3

REPORT INFORMATION
  Report Type: Spontaneous
  Country: US (occurrence: US)
  Receive Date: 20160720
  Receipt Date: 20160720
  Transmission Date: 20161109
  Serious: No
  Sender: FDA-Public Use
  Company Number: GXBR2016US002136

PATIENT
  Sex: Female
  Weight: 58.96 kg

DRUGS (5)
  1. AMOXICILLIN AND CLAVULANATE POTASSIUM TABLETS USP [Suspect]
     Active Substance: AMOXICILLIN\CLAVULANATE POTASSIUM
     Indication: SINUSITIS
     Dosage: 500MG AMOXICILLIN AND 125MG CLAVULANTE, UNK
     Route: 048
     Dates: start: 20160613
  2. POPYRAL [Concomitant]
     Dosage: UNK DF, UNK
     Route: 065
  3. AMOXICILLIN AND CLAVULANATE POTASSIUM TABLETS USP [Suspect]
     Active Substance: AMOXICILLIN\CLAVULANATE POTASSIUM
     Indication: EAR INFECTION
  4. LEVOTHYROXINE. [Concomitant]
     Active Substance: LEVOTHYROXINE
     Dosage: UNK DF, UNK
     Route: 065
  5. CELEBRATE [Concomitant]
     Dosage: UNK DF, UNK
     Route: 065

REACTIONS (1)
  - Drug ineffective [Not Recovered/Not Resolved]
